FAERS Safety Report 22220620 (Version 1)
Quarter: 2023Q2

REPORT INFORMATION
  Report Type: Spontaneous
  Country: US (occurrence: US)
  Receive Date: 20230417
  Receipt Date: 20230417
  Transmission Date: 20230722
  Serious: No
  Sender: FDA-Public Use
  Company Number: US-drreddys-SPO/USA/23/0163184

PATIENT
  Age: 36 Year
  Sex: Female

DRUGS (2)
  1. ZENATANE [Suspect]
     Active Substance: ISOTRETINOIN
     Indication: Acne
     Dosage: RMA ISSUE DATES: 30 NOVEMBER 2022 02:35:39 PM
  2. ZENATANE [Suspect]
     Active Substance: ISOTRETINOIN
     Dosage: RMA ISSUE DATES: 04 JANUARY 2023 03:17:39 PM, 22 FEBRUARY 2023 01:42:25 PM

REACTIONS (2)
  - Blood cholesterol abnormal [Unknown]
  - Lipids abnormal [Unknown]
